FAERS Safety Report 8596803-2 (Version None)
Quarter: 2012Q3

REPORT INFORMATION
  Report Type: 
  Country: None (occurrence: None)
  Receive Date: 20120815
  Receipt Date: 20120808
  Transmission Date: 20120928
  Serious: No
  Sender: FDA-Public Use
  Company Number: US-ASTRAZENECA-2012SE56292

PATIENT
  Age: 74 Year
  Sex: Male
  Weight: 80.7 kg

DRUGS (4)
  1. RAPAFLO [Concomitant]
     Indication: PROSTATOMEGALY
  2. TOPROL-XL [Suspect]
     Indication: HYPERTENSION
     Route: 048
     Dates: start: 20120301, end: 20120101
  3. DILTIAZEM [Suspect]
     Route: 065
     Dates: start: 20120101, end: 20120101
  4. TOPROL-XL [Suspect]
     Indication: VENTRICULAR EXTRASYSTOLES
     Route: 048
     Dates: start: 20120301, end: 20120101

REACTIONS (5)
  - GYNAECOMASTIA [None]
  - OFF LABEL USE [None]
  - DRUG DOSE OMISSION [None]
  - HYPERTENSION [None]
  - SINUSITIS [None]
